FAERS Safety Report 5761563-7 (Version None)
Quarter: 2008Q2

REPORT INFORMATION
  Report Type: 
  Country: None (occurrence: None)
  Receive Date: 20080606
  Receipt Date: 20080529
  Transmission Date: 20081010
  Serious: Yes (Other)
  Sender: FDA-Public Use
  Company Number: US-GENENTECH-255355

PATIENT
  Sex: Female
  Weight: 68.027 kg

DRUGS (4)
  1. AVASTIN [Suspect]
     Indication: MACULAR DEGENERATION
     Dosage: UNK, 1/MONTH
     Route: 031
     Dates: start: 20070701
  2. AVASTIN [Suspect]
  3. LASIX [Concomitant]
     Indication: DRUG USE FOR UNKNOWN INDICATION
  4. METOPROLOL TARTRATE [Concomitant]
     Indication: DRUG USE FOR UNKNOWN INDICATION

REACTIONS (2)
  - BLINDNESS [None]
  - DRUG INEFFECTIVE [None]
